FAERS Safety Report 4655953-3 (Version None)
Quarter: 2005Q2

REPORT INFORMATION
  Report Type: 
  Country: None (occurrence: None)
  Receive Date: 20050506
  Receipt Date: 20050506
  Transmission Date: 20051028
  Serious: Yes (Hospitalization, Other)
  Sender: FDA-Public Use
  Company Number: None

PATIENT
  Sex: Male
  Weight: 93 kg

DRUGS (1)
  1. CAMPATH [Suspect]
     Dates: start: 20040621

REACTIONS (2)
  - CHILLS [None]
  - PANCYTOPENIA [None]
